FAERS Safety Report 23232107 (Version 3)
Quarter: 2023Q4

REPORT INFORMATION
  Report Type: Spontaneous
  Country: CH (occurrence: CH)
  Receive Date: 20231127
  Receipt Date: 20231130
  Transmission Date: 20240109
  Serious: Yes (Death, Other)
  Sender: FDA-Public Use
  Company Number: CH-BoehringerIngelheim-2023-BI-274955

PATIENT
  Age: 75 Year
  Sex: Male
  Weight: 66 kg

DRUGS (3)
  1. NINTEDANIB [Suspect]
     Active Substance: NINTEDANIB
     Indication: Idiopathic pulmonary fibrosis
     Dates: start: 2016
  2. NINTEDANIB [Suspect]
     Active Substance: NINTEDANIB
     Dates: end: 2021
  3. DANAZOL [Concomitant]
     Active Substance: DANAZOL
     Indication: Gene mutation
     Dates: start: 2019, end: 2021

REACTIONS (4)
  - Respiratory failure [Fatal]
  - Sepsis [Recovered/Resolved]
  - Sepsis [Recovered/Resolved]
  - Diarrhoea [Recovered/Resolved]

NARRATIVE: CASE EVENT DATE: 20180601
